FAERS Safety Report 7799077-5 (Version None)
Quarter: 2011Q4

REPORT INFORMATION
  Report Type: 
  Country: None (occurrence: None)
  Receive Date: 20111006
  Receipt Date: 20110929
  Transmission Date: 20120403
  Serious: Yes (Hospitalization)
  Sender: FDA-Public Use
  Company Number: DE-SANOFI-AVENTIS-2011SA058189

PATIENT
  Age: 57 Year
  Sex: Male
  Weight: 90 kg

DRUGS (10)
  1. LEUCOVORIN CALCIUM [Suspect]
     Route: 042
     Dates: start: 20110824, end: 20110824
  2. LEUCOVORIN CALCIUM [Suspect]
     Route: 042
     Dates: start: 20100111, end: 20100111
  3. DISALUNIL [Concomitant]
  4. FLUOROURACIL [Suspect]
     Route: 042
     Dates: start: 20110824, end: 20110824
  5. FLUOROURACIL [Suspect]
     Route: 042
     Dates: start: 20100111, end: 20100111
  6. OXALIPLATIN [Suspect]
     Route: 042
     Dates: start: 20110810, end: 20110810
  7. SODIUM CHLORIDE INJ [Concomitant]
     Route: 042
  8. AFLIBERCEPT [Suspect]
     Route: 042
     Dates: start: 20100111, end: 20100111
  9. AFLIBERCEPT [Suspect]
     Route: 042
     Dates: start: 20110824, end: 20110824
  10. OXALIPLATIN [Suspect]
     Route: 042
     Dates: start: 20100111, end: 20100111

REACTIONS (1)
  - URINARY RETENTION [None]
